FAERS Safety Report 6589497-9 (Version None)
Quarter: 2010Q1

REPORT INFORMATION
  Report Type: 
  Country: None (occurrence: None)
  Receive Date: 20100205
  Receipt Date: 20100114
  Transmission Date: 20100710
  Serious: Yes (Hospitalization)
  Sender: FDA-Public Use
  Company Number: 004472

PATIENT

DRUGS (2)
  1. VIMPAT [Suspect]
     Dosage: (UP TITRATION), (50 MG TID, 50 MG TABS , ONE A.M. AND 2 TAB IN P.M.)
  2. TOPAMAX [Concomitant]

REACTIONS (1)
  - DRUG HYPERSENSITIVITY [None]
